FAERS Safety Report 15074205 (Version 2)
Quarter: 2021Q3

REPORT INFORMATION
  Report Type: Spontaneous
  Country: CA (occurrence: CA)
  Receive Date: 20180627
  Receipt Date: 20210722
  Transmission Date: 20211014
  Serious: Yes (Life-Threatening, Disabling, Other)
  Sender: FDA-Public Use
  Company Number: CA-ROCHE-2141286

PATIENT
  Age: 50 Year
  Sex: Female
  Weight: 80 kg

DRUGS (9)
  1. ACTEMRA [Suspect]
     Active Substance: TOCILIZUMAB
     Indication: RHEUMATOID ARTHRITIS
     Route: 065
  2. XELJANZ [Suspect]
     Active Substance: TOFACITINIB CITRATE
     Indication: RHEUMATOID ARTHRITIS
     Route: 065
  3. ENBREL [Suspect]
     Active Substance: ETANERCEPT
     Indication: RHEUMATOID ARTHRITIS
     Route: 058
  4. BENADRYL [Concomitant]
     Active Substance: DIPHENHYDRAMINE HYDROCHLORIDE
  5. HUMIRA [Concomitant]
     Active Substance: ADALIMUMAB
  6. ENBREL [Suspect]
     Active Substance: ETANERCEPT
     Route: 065
  7. METHOTREXATE. [Suspect]
     Active Substance: METHOTREXATE
     Indication: RHEUMATOID ARTHRITIS
     Route: 065
  8. PREDNISONE. [Concomitant]
     Active Substance: PREDNISONE
  9. DIPHENHYDRAMINE. [Concomitant]
     Active Substance: DIPHENHYDRAMINE

REACTIONS (50)
  - Cerebral disorder [Unknown]
  - Flatulence [Unknown]
  - Loss of personal independence in daily activities [Unknown]
  - Underdose [Unknown]
  - Wrong technique in product usage process [Unknown]
  - Brain neoplasm [Unknown]
  - Fatigue [Unknown]
  - Nausea [Unknown]
  - Asthenia [Unknown]
  - Feeling abnormal [Unknown]
  - Head injury [Unknown]
  - Hyperhidrosis [Unknown]
  - Loss of consciousness [Unknown]
  - Mental fatigue [Unknown]
  - Pyrexia [Unknown]
  - Skin atrophy [Unknown]
  - Skin discolouration [Unknown]
  - Arthralgia [Unknown]
  - Burning sensation [Unknown]
  - Chills [Unknown]
  - Musculoskeletal pain [Unknown]
  - Swelling [Unknown]
  - Vomiting [Unknown]
  - Walking aid user [Unknown]
  - Anxiety [Not Recovered/Not Resolved]
  - Loss of employment [Unknown]
  - Pain in extremity [Unknown]
  - Arthritis [Unknown]
  - Bone pain [Unknown]
  - Fall [Unknown]
  - Infection [Unknown]
  - Muscle disorder [Unknown]
  - Nerve injury [Unknown]
  - Peripheral swelling [Unknown]
  - Urinary incontinence [Unknown]
  - Urticaria [Unknown]
  - Disability [Unknown]
  - Dyspnoea [Unknown]
  - Malaise [Unknown]
  - Muscular weakness [Unknown]
  - Pain [Unknown]
  - Stress [Unknown]
  - Drug hypersensitivity [Unknown]
  - Gastric disorder [Unknown]
  - Mobility decreased [Unknown]
  - Paraesthesia [Unknown]
  - Pericarditis [Unknown]
  - Productive cough [Unknown]
  - Pruritus [Unknown]
  - White blood cell count decreased [Unknown]
